FAERS Safety Report 14019646 (Version 1)
Quarter: 2017Q3

REPORT INFORMATION
  Report Type: Spontaneous
  Country: GR (occurrence: GR)
  Receive Date: 20170928
  Receipt Date: 20170928
  Transmission Date: 20171128
  Serious: Yes (Death, Other)
  Sender: FDA-Public Use
  Company Number: GR-CELGENEUS-GRC-20170905551

PATIENT
  Age: 76 Year
  Sex: Male

DRUGS (6)
  1. RITUXIMAB. [Concomitant]
     Active Substance: RITUXIMAB
     Indication: PRODUCT USED FOR UNKNOWN INDICATION
     Route: 065
  2. PREDNISONE. [Concomitant]
     Active Substance: PREDNISONE
     Indication: PRODUCT USED FOR UNKNOWN INDICATION
     Route: 065
  3. CYCLOPHOSPHAMIDE. [Concomitant]
     Active Substance: CYCLOPHOSPHAMIDE
     Indication: PRODUCT USED FOR UNKNOWN INDICATION
     Route: 065
  4. AZACITIDINE. [Suspect]
     Active Substance: AZACITIDINE
     Indication: MYELODYSPLASTIC SYNDROME
     Dosage: 17.5 MILLIGRAM/SQ. METER
     Route: 058
  5. DOXORUBICIN [Concomitant]
     Active Substance: DOXORUBICIN
     Indication: PRODUCT USED FOR UNKNOWN INDICATION
     Route: 065
  6. VINCRISTINE [Concomitant]
     Active Substance: VINCRISTINE
     Indication: PRODUCT USED FOR UNKNOWN INDICATION
     Route: 065

REACTIONS (5)
  - Pancytopenia [Unknown]
  - Pulmonary haemorrhage [Fatal]
  - Malaise [Unknown]
  - B-cell lymphoma [Unknown]
  - Ascites [Recovering/Resolving]

NARRATIVE: CASE EVENT DATE: 201610
